FAERS Safety Report 21879634 (Version 1)
Quarter: 2023Q1

REPORT INFORMATION
  Report Type: Spontaneous
  Country: NL (occurrence: NL)
  Receive Date: 20230118
  Receipt Date: 20230118
  Transmission Date: 20230417
  Serious: Yes (Other)
  Sender: FDA-Public Use
  Company Number: None

PATIENT
  Sex: Female
  Weight: 61 kg

DRUGS (1)
  1. ESCITALOPRAM [Suspect]
     Active Substance: ESCITALOPRAM OXALATE
     Indication: Anxiety
     Dosage: 10 MG, QD,1 X PER DAY 1 PIECE,
     Route: 065
     Dates: start: 20221024

REACTIONS (2)
  - Urinary retention [Not Recovered/Not Resolved]
  - Hypertonic bladder [Not Recovered/Not Resolved]
